FAERS Safety Report 14795663 (Version 2)
Quarter: 2018Q3

REPORT INFORMATION
  Report Type: Report from Study
  Country: US (occurrence: US)
  Receive Date: 20180423
  Receipt Date: 20180719
  Transmission Date: 20181010
  Serious: No
  Sender: FDA-Public Use
  Company Number: US-AMGEN-USASL2018036407

PATIENT
  Sex: Female

DRUGS (1)
  1. REPATHA [Suspect]
     Active Substance: EVOLOCUMAB
     Indication: HYPERCHOLESTEROLAEMIA
     Dosage: 140 MG, Q2WK
     Route: 058

REACTIONS (8)
  - Blood glucose increased [Unknown]
  - Urine odour abnormal [Recovered/Resolved]
  - Dysgeusia [Recovered/Resolved]
  - Erythema [Recovering/Resolving]
  - Rhinorrhoea [Unknown]
  - Muscle spasms [Not Recovered/Not Resolved]
  - Nasal congestion [Unknown]
  - Eye swelling [Unknown]
